FAERS Safety Report 22210673 (Version 21)
Quarter: 2025Q4

REPORT INFORMATION
  Report Type: Report from Study
  Country: US (occurrence: US)
  Receive Date: 20230414
  Receipt Date: 20251103
  Transmission Date: 20260118
  Serious: Yes (Hospitalization, Other)
  Sender: TAKEDA
  Company Number: US-TAKEDA-2022TUS094158

PATIENT
  Age: 50 Year
  Sex: Female
  Weight: 98 kg

DRUGS (27)
  1. HUMAN IMMUNOGLOBULIN G [Suspect]
     Active Substance: HUMAN IMMUNOGLOBULIN G
     Indication: Immunodeficiency common variable
     Dosage: 24 GRAM, Q2WEEKS
  2. HUMAN IMMUNOGLOBULIN G [Suspect]
     Active Substance: HUMAN IMMUNOGLOBULIN G
     Dosage: 12 GRAM, 1/WEEK
  3. HUMAN IMMUNOGLOBULIN G [Suspect]
     Active Substance: HUMAN IMMUNOGLOBULIN G
     Dosage: 14 GRAM, 1/WEEK
  4. HUMAN IMMUNOGLOBULIN G [Suspect]
     Active Substance: HUMAN IMMUNOGLOBULIN G
     Dosage: 18 GRAM, 1/WEEK
  5. CUVITRU [Suspect]
     Active Substance: HUMAN IMMUNOGLOBULIN G
     Indication: Immunodeficiency common variable
     Dosage: 18 GRAM, 1/WEEK
  6. BENADRYL [Suspect]
     Active Substance: DIPHENHYDRAMINE HYDROCHLORIDE
     Indication: Product used for unknown indication
     Dosage: UNK
  7. DIPHENHYDRAMINE [Concomitant]
     Active Substance: DIPHENHYDRAMINE
     Dosage: UNK
  8. ACETAMINOPHEN\HYDROCODONE [Concomitant]
     Active Substance: ACETAMINOPHEN\HYDROCODONE
     Dosage: UNK
  9. VITAMIN D3 [Concomitant]
     Active Substance: CHOLECALCIFEROL
     Dosage: UNK
  10. EPINEPHRINE [Concomitant]
     Active Substance: EPINEPHRINE
     Dosage: UNK
  11. STRATTERA [Concomitant]
     Active Substance: ATOMOXETINE HYDROCHLORIDE
     Dosage: UNK
  12. FLUOXETINE HYDROCHLORIDE [Concomitant]
     Active Substance: FLUOXETINE HYDROCHLORIDE
     Dosage: UNK
  13. ALBUTEROL SULFATE [Concomitant]
     Active Substance: ALBUTEROL SULFATE
     Dosage: UNK
  14. FLOVENT HFA [Concomitant]
     Active Substance: FLUTICASONE PROPIONATE
     Dosage: UNK
  15. Lmx [Concomitant]
     Dosage: UNK
  16. OXYBUTYNIN CHLORIDE [Concomitant]
     Active Substance: OXYBUTYNIN CHLORIDE
     Dosage: UNK
  17. DIPHENHYDRAMINE HYDROCHLORIDE [Concomitant]
     Active Substance: DIPHENHYDRAMINE HYDROCHLORIDE
     Dosage: UNK
  18. ACETAMINOPHEN [Concomitant]
     Active Substance: ACETAMINOPHEN
     Dosage: UNK
  19. IBUPROFEN [Concomitant]
     Active Substance: IBUPROFEN
     Dosage: UNK
  20. COD LIVER OIL [Concomitant]
     Active Substance: COD LIVER OIL
     Dosage: UNK
  21. MUCINEX [Concomitant]
     Active Substance: GUAIFENESIN
     Dosage: UNK
  22. BREO ELLIPTA [Concomitant]
     Active Substance: FLUTICASONE FUROATE\VILANTEROL TRIFENATATE
     Dosage: UNK
  23. BERBERINE [Concomitant]
     Active Substance: BERBERINE
     Dosage: UNK
  24. HUMIRA [Concomitant]
     Active Substance: ADALIMUMAB
     Dosage: UNK
  25. VANCOMYCIN HYDROCHLORIDE [Concomitant]
     Active Substance: VANCOMYCIN HYDROCHLORIDE
     Dosage: UNK
  26. OXYGEN [Concomitant]
     Active Substance: OXYGEN
     Dosage: UNK
  27. LIDOCAINE [Concomitant]
     Active Substance: LIDOCAINE
     Dosage: UNK

REACTIONS (45)
  - Diverticulitis [Unknown]
  - Blood pressure abnormal [Unknown]
  - Clostridium difficile infection [Unknown]
  - Kidney infection [Unknown]
  - Injection site discharge [Unknown]
  - Rash macular [Unknown]
  - Fibrosis [Unknown]
  - Reversed hot-cold sensation [Unknown]
  - Skin sensitisation [Unknown]
  - Nasopharyngitis [Unknown]
  - Gastrointestinal infection [Unknown]
  - Candida infection [Unknown]
  - Frequent bowel movements [Unknown]
  - Subcutaneous emphysema [Unknown]
  - Viral infection [Unknown]
  - Lipomatosis [Unknown]
  - Product supply issue [Unknown]
  - Carpal tunnel syndrome [Unknown]
  - Procedural pain [Unknown]
  - Administration site pain [Unknown]
  - Infection [Unknown]
  - Application site erythema [Unknown]
  - Infusion site discharge [Unknown]
  - Application site pruritus [Unknown]
  - Nodule [Unknown]
  - Infusion site mass [Unknown]
  - Influenza [Unknown]
  - Infusion site oedema [Unknown]
  - Somnolence [Unknown]
  - Body temperature increased [Unknown]
  - Infusion site discomfort [Unknown]
  - Infusion site erythema [Unknown]
  - Infusion site pruritus [Unknown]
  - Muscle spasms [Unknown]
  - Infusion site swelling [Recovered/Resolved]
  - Arthralgia [Unknown]
  - Vomiting [Unknown]
  - Infusion site pain [Unknown]
  - Pruritus [Unknown]
  - Nausea [Unknown]
  - Flushing [Unknown]
  - Wheezing [Unknown]
  - Abdominal pain upper [Unknown]
  - Rash erythematous [Unknown]
  - Paraesthesia [Unknown]

NARRATIVE: CASE EVENT DATE: 20231125
